FAERS Safety Report 13342646 (Version 3)
Quarter: 2017Q2

REPORT INFORMATION
  Report Type: Spontaneous
  Country: FR (occurrence: FR)
  Receive Date: 20170316
  Receipt Date: 20170502
  Transmission Date: 20170830
  Serious: Yes (Hospitalization, Other)
  Sender: FDA-Public Use
  Company Number: FR-ELI_LILLY_AND_COMPANY-FR201703002618

PATIENT
  Age: 68 Year
  Sex: Male
  Weight: 96 kg

DRUGS (14)
  1. SYMBICORT [Suspect]
     Active Substance: BUDESONIDE\FORMOTEROL FUMARATE DIHYDRATE
     Indication: PRODUCT USED FOR UNKNOWN INDICATION
     Dosage: 2 DF, QD
     Route: 055
  2. SILODYX [Suspect]
     Active Substance: SILODOSIN
     Indication: PRODUCT USED FOR UNKNOWN INDICATION
     Dosage: 8 MG, QD
     Route: 048
     Dates: end: 20170223
  3. POLERY ADULTE [Suspect]
     Active Substance: CODEINE\SISYMBRIUM OFFICINALE WHOLE
     Indication: PRODUCT USED FOR UNKNOWN INDICATION
     Dosage: 3 DF, QD
     Route: 048
     Dates: start: 20170223
  4. AUGMENTIN [Suspect]
     Active Substance: AMOXICILLIN\CLAVULANATE POTASSIUM
     Indication: PNEUMONIA
     Dosage: 3 DF, QD
     Route: 042
     Dates: start: 20170223, end: 20170225
  5. KARDEGIC [Suspect]
     Active Substance: ASPIRIN LYSINE
     Indication: PRODUCT USED FOR UNKNOWN INDICATION
     Dosage: 160 MG, QD
     Route: 048
     Dates: end: 20170228
  6. ATORVASTATINE BIOGARAN [Suspect]
     Active Substance: ATORVASTATIN CALCIUM
     Indication: PRODUCT USED FOR UNKNOWN INDICATION
     Dosage: 40 MG, QD
     Route: 048
     Dates: end: 20170228
  7. ALIMTA [Suspect]
     Active Substance: PEMETREXED DISODIUM
     Indication: MESOTHELIOMA
     Dosage: 500 MG, QD
     Route: 042
     Dates: start: 20170220, end: 20170220
  8. INEXIUM                            /01479302/ [Suspect]
     Active Substance: ESOMEPRAZOLE MAGNESIUM
     Indication: PRODUCT USED FOR UNKNOWN INDICATION
     Dosage: 20 MG, QD
     Route: 048
  9. ZOPICLONE BIOGARAN [Suspect]
     Active Substance: ZOPICLONE
     Indication: PRODUCT USED FOR UNKNOWN INDICATION
     Dosage: 7.5 MG, QD
     Route: 048
  10. AMLODIPINE [Suspect]
     Active Substance: AMLODIPINE BESYLATE
     Indication: PRODUCT USED FOR UNKNOWN INDICATION
     Dosage: 5 MG, QD
     Route: 048
     Dates: end: 20170227
  11. SODIUM BICARBONATE. [Suspect]
     Active Substance: SODIUM BICARBONATE
     Indication: PRODUCT USED FOR UNKNOWN INDICATION
     Dosage: UNK UNK, UNKNOWN
     Route: 002
  12. LACTULOSE BIOGARAN [Suspect]
     Active Substance: LACTULOSE
     Indication: PRODUCT USED FOR UNKNOWN INDICATION
     Dosage: 1 DF, QD
     Route: 048
  13. FLUIDABAK [Suspect]
     Active Substance: POVIDONE
     Indication: PRODUCT USED FOR UNKNOWN INDICATION
     Dosage: 1 GTT, QID
     Route: 047
     Dates: end: 20170223
  14. GELUPRANE [Suspect]
     Active Substance: ACETAMINOPHEN
     Indication: PRODUCT USED FOR UNKNOWN INDICATION
     Dosage: 300 MG, QD
     Route: 048
     Dates: end: 20170223

REACTIONS (16)
  - Drug reaction with eosinophilia and systemic symptoms [Recovered/Resolved]
  - Hypotension [Recovering/Resolving]
  - Thrombocytopenia [Unknown]
  - Acute kidney injury [Recovering/Resolving]
  - General physical condition abnormal [Unknown]
  - Dermatitis exfoliative [Recovered/Resolved]
  - Toxic skin eruption [Not Recovered/Not Resolved]
  - Coagulation factor decreased [Recovering/Resolving]
  - Hepatocellular injury [Recovering/Resolving]
  - Histiocytosis haematophagic [Recovering/Resolving]
  - Pancytopenia [Recovered/Resolved]
  - Dyspnoea [Not Recovered/Not Resolved]
  - Hyperthermia [Recovered/Resolved]
  - Erythema [Recovered/Resolved]
  - Pneumonia [Not Recovered/Not Resolved]
  - Dermatitis bullous [Recovered/Resolved]

NARRATIVE: CASE EVENT DATE: 201702
